FAERS Safety Report 6349319-8 (Version None)
Quarter: 2009Q3

REPORT INFORMATION
  Report Type: 
  Country: None (occurrence: None)
  Receive Date: 20090911
  Receipt Date: 20090903
  Transmission Date: 20100115
  Serious: Yes (Hospitalization)
  Sender: FDA-Public Use
  Company Number: B0591520A

PATIENT
  Age: 80 Year
  Sex: Male

DRUGS (1)
  1. ZELITREX [Suspect]
     Dosage: 500MG SEE DOSAGE TEXT
     Route: 048
     Dates: start: 20090901, end: 20090901

REACTIONS (1)
  - CEREBELLAR SYNDROME [None]
